FAERS Safety Report 8994347 (Version 3)
Quarter: 2013Q1

REPORT INFORMATION
  Report Type: Spontaneous
  Country: US (occurrence: US)
  Receive Date: 20130102
  Receipt Date: 20130116
  Transmission Date: 20140127
  Serious: Yes (Other)
  Sender: FDA-Public Use
  Company Number: US-AMGEN-USASP2012081142

PATIENT
  Age: 64 Year
  Sex: Female
  Weight: 91.16 kg

DRUGS (20)
  1. ENBREL [Suspect]
     Indication: PSORIATIC ARTHROPATHY
     Dosage: 50 MG, QWK
     Route: 058
     Dates: start: 20120601, end: 20120629
  2. ENBREL [Suspect]
     Indication: PSORIASIS
  3. SIMPONI [Concomitant]
     Dosage: 50 MG, QMO, REFILLS 4
     Route: 058
  4. INSULIN [Concomitant]
     Dosage: 1 CC, UNK, QWK
  5. PREVACID [Concomitant]
     Dosage: 15 MG, QD
  6. VITAMIN B12                        /00056201/ [Concomitant]
     Dosage: 1000 MCG DAILY FOR 3 DAYS, THEN 1 ML WEEKLY FOR 4 WEEKS THEN 1 ML MONTHLYUNK, UNK
  7. SYNTHROID [Concomitant]
     Dosage: 0.05 MG, QD, 1 TAB
  8. ROBAXIN-750 [Concomitant]
     Dosage: 750 MG, 1 TO 2 TABLETS BY MOUTH EVERY 6 TO 8 HOURS,UNK
  9. TRACLEER                           /01587701/ [Concomitant]
     Dosage: 62-5 MG, BID
     Route: 048
  10. MAGNESIUM OXIDE [Concomitant]
     Dosage: 1200 MG, UNK
  11. SPIRONOLACTONE [Concomitant]
     Dosage: 50 MG, QD
     Route: 048
  12. K-TAB [Concomitant]
     Dosage: 20 MEQ, BID
  13. ATORVASTATIN [Concomitant]
     Dosage: 40 MG, QD, HS
  14. ERGOCALCIFEROL [Concomitant]
     Dosage: 50000 IU, QWK
  15. METHOTREXATE SODIUM [Concomitant]
     Dosage: 25 MG, QWK
  16. FOLIC ACID [Concomitant]
     Dosage: 1 MG, QD
  17. LORTAB                             /00607101/ [Concomitant]
     Dosage: 10/325 EVERY 4-6 HOURS
  18. COMBIVENT [Concomitant]
     Indication: DYSPNOEA
     Dosage: 103-18 MCG/INH AEROSOLWITH ADAPTER, 2 PUFFS - 4 TIMES A DAY
  19. LYRICA [Concomitant]
     Dosage: 100 MG, TID
  20. ZOLOFT [Concomitant]
     Dosage: 100 MG, QD

REACTIONS (36)
  - Oxygen consumption decreased [Unknown]
  - Dyspnoea [Unknown]
  - Palpitations [Unknown]
  - Chest pain [Unknown]
  - Urticaria [Recovered/Resolved]
  - Arthralgia [Not Recovered/Not Resolved]
  - Adverse drug reaction [Unknown]
  - Dry eye [Unknown]
  - Dry mouth [Unknown]
  - Local swelling [Unknown]
  - Dyspepsia [Unknown]
  - Contusion [Unknown]
  - Asthenia [Unknown]
  - Rash [Not Recovered/Not Resolved]
  - Joint swelling [Unknown]
  - Mobility decreased [Unknown]
  - Spinal pain [Unknown]
  - Synovitis [Unknown]
  - Joint crepitation [Unknown]
  - Weight abnormal [Unknown]
  - Eosinophil count abnormal [Unknown]
  - Red blood cell sedimentation rate abnormal [Unknown]
  - Musculoskeletal discomfort [Unknown]
  - Fatigue [Unknown]
  - Tenderness [Unknown]
  - Chondrocalcinosis [Unknown]
  - Knee deformity [Unknown]
  - Anxiety [Unknown]
  - Joint range of motion decreased [Unknown]
  - Pain in extremity [Unknown]
  - White blood cell count abnormal [Unknown]
  - Gait disturbance [Unknown]
  - Nervousness [Unknown]
  - Depression [Unknown]
  - Depressed mood [Unknown]
  - Injection site reaction [Unknown]
